FAERS Safety Report 6379878-0 (Version None)
Quarter: 2009Q3

REPORT INFORMATION
  Report Type: 
  Country: None (occurrence: None)
  Receive Date: 20090928
  Receipt Date: 20090916
  Transmission Date: 20100115
  Serious: No
  Sender: FDA-Public Use
  Company Number: PHEH2009US11099

PATIENT
  Sex: Female

DRUGS (11)
  1. TASIGNA [Suspect]
     Indication: CHRONIC MYELOID LEUKAEMIA
     Dosage: 400 MG, BID
     Route: 048
     Dates: start: 20081107, end: 20090916
  2. HYDROCHLOROTHIAZIDE [Concomitant]
  3. METFORMIN HYDROCHLORIDE [Concomitant]
  4. DIOVAN [Concomitant]
  5. OXYCODONE HCL [Concomitant]
  6. METOPROLOL [Concomitant]
  7. PAXIL [Concomitant]
  8. HYDROXYZINE [Concomitant]
  9. PREMARIN [Concomitant]
  10. PROTONIX [Concomitant]
  11. XANAX [Concomitant]

REACTIONS (5)
  - ARTHRALGIA [None]
  - DYSPNOEA [None]
  - MEDICATION ERROR [None]
  - MYALGIA [None]
  - NAUSEA [None]
